FAERS Safety Report 4928900-4 (Version None)
Quarter: 2006Q1

REPORT INFORMATION
  Report Type: 
  Country: None (occurrence: None)
  Receive Date: 20060301
  Receipt Date: 20051012
  Transmission Date: 20060701
  Serious: Yes (Hospitalization)
  Sender: FDA-Public Use
  Company Number: US-ABBOTT-05P-163-0314580-00

PATIENT
  Sex: Male

DRUGS (10)
  1. DILAUDID [Suspect]
     Indication: PAIN MANAGEMENT
     Route: 048
     Dates: start: 20041013, end: 20050111
  2. RITONAVIR SOFT GELATIN CAPSULES [Suspect]
     Indication: HIV INFECTION
     Route: 048
     Dates: start: 20050107
  3. RITONAVIR SOFT GELATIN CAPSULES [Suspect]
  4. TIPRANAVIR [Suspect]
     Indication: HIV INFECTION
     Route: 048
     Dates: start: 20050107
  5. TIPRANAVIR [Suspect]
  6. TRAZODONE [Suspect]
     Indication: INSOMNIA
     Route: 048
     Dates: start: 20030501, end: 20050110
  7. ZOLPIDEM TARTRATE [Suspect]
     Indication: INSOMNIA
     Route: 048
     Dates: end: 20050110
  8. FUZEON [Concomitant]
     Indication: DRUG USE FOR UNKNOWN INDICATION
     Route: 058
     Dates: start: 20050107
  9. TRUVADA [Concomitant]
     Indication: HIV INFECTION
     Route: 048
     Dates: start: 20050107
  10. STAVUDINE [Concomitant]
     Indication: HIV INFECTION
     Route: 048
     Dates: start: 20050107

REACTIONS (3)
  - AIDS DEMENTIA COMPLEX [None]
  - DRUG ABUSER [None]
  - NEGLECT OF PERSONAL APPEARANCE [None]
